FAERS Safety Report 9298796 (Version 1)
Quarter: 2013Q1

REPORT INFORMATION
  Report Type: Spontaneous
  Country: US (occurrence: None)
  Receive Date: 20121227
  Receipt Date: 20121227
  Transmission Date: 20140127
  Serious: Yes (Hospitalization, Other)
  Sender: FDA-Public Use
  Company Number: PHEH2012US006771

PATIENT
  Age: 27 Year
  Sex: Male

DRUGS (8)
  1. AFINITOR [Suspect]
     Indication: TUBEROUS SCLEROSIS
     Route: 048
     Dates: start: 20120304
  2. SABRIL (VIGABATRIN) [Concomitant]
  3. LAMICTAL (LAMOTRIGINE) [Concomitant]
  4. PROZAC (FLUOXETINE HYDROCHLORIDE) [Concomitant]
  5. VITAMIN D (ERGOCALCIFEROL) [Concomitant]
  6. DILANTIN (PHENYTOIN SODIUM) [Concomitant]
  7. SEROQUEL (QUETIAPINE FUMARATE) [Concomitant]
  8. TAURINE (TAURINE) [Concomitant]

REACTIONS (10)
  - Chest pain [None]
  - Convulsion [None]
  - Complex partial seizures [None]
  - Upper-airway cough syndrome [None]
  - Abnormal behaviour [None]
  - Aphthous stomatitis [None]
  - Oropharyngeal pain [None]
  - Fatigue [None]
  - Blood cholesterol increased [None]
  - Grand mal convulsion [None]
